FAERS Safety Report 8326115-3 (Version None)
Quarter: 2012Q2

REPORT INFORMATION
  Report Type: 
  Country: None (occurrence: None)
  Receive Date: 20120501
  Receipt Date: 20120425
  Transmission Date: 20120825
  Serious: Yes (Other)
  Sender: FDA-Public Use
  Company Number: US-PFIZER INC-2012103030

PATIENT
  Sex: Female
  Weight: 79.4 kg

DRUGS (12)
  1. NARDIL [Concomitant]
     Dosage: 15 MG, 3X/DAY
  2. LACTULOSE [Concomitant]
     Indication: CONSTIPATION
     Dosage: UNK
  3. VITAMIN D [Concomitant]
     Indication: HYPOVITAMINOSIS
     Dosage: UNK
  4. ACCURETIC [Suspect]
     Indication: HYPERTENSION
     Dosage: 20/12.5  MG,ONCE A DAY
     Route: 048
  5. BISACODYL [Concomitant]
     Dosage: 5 MG, UNK
  6. ALPRAZOLAM [Concomitant]
     Dosage: 0.5 MG, AS NEEDED
  7. FIORICET [Concomitant]
     Dosage: UNK, AS NEEDED
  8. ACETYLSALICYLIC ACID [Concomitant]
     Indication: CARDIAC DISORDER
     Dosage: UNK
  9. ALLEGRA [Concomitant]
     Indication: HYPERSENSITIVITY
     Dosage: UNK, ONCE A DAY
  10. LOVAZA [Concomitant]
     Dosage: UNK
  11. NEXIUM [Concomitant]
     Dosage: 40 MG, 2X/DAY
  12. ALBUTEROL [Concomitant]
     Indication: ASTHMA
     Dosage: UNK, AS NEEDED

REACTIONS (3)
  - HYPERTENSION [None]
  - WEIGHT DECREASED [None]
  - HEART RATE INCREASED [None]
